FAERS Safety Report 9404803 (Version 2)
Quarter: 2013Q3

REPORT INFORMATION
  Report Type: Spontaneous
  Country: US (occurrence: US)
  Receive Date: 20130717
  Receipt Date: 20130729
  Transmission Date: 20140515
  Serious: Yes (Other)
  Sender: FDA-Public Use
  Company Number: US-BAYER-2013-086486

PATIENT
  Age: 24 Year
  Sex: Female
  Weight: 54.88 kg

DRUGS (16)
  1. YAZ [Suspect]
     Dosage: UNK
     Dates: start: 20110102
  2. YAZ [Suspect]
     Dosage: UNK
     Dates: start: 20110308
  3. YAZ [Suspect]
     Dosage: UNK
     Dates: start: 20110320
  4. OCELLA [Suspect]
     Dosage: UNK
     Dates: start: 20110601
  5. YASMIN [Suspect]
  6. SAFYRAL [Suspect]
     Dosage: UNK
     Dates: start: 201101, end: 201109
  7. PREVACID [Concomitant]
     Dosage: 15 MG, UNK
  8. NASONEX [Concomitant]
  9. SINGULAIR [Concomitant]
  10. ADVAIR [Concomitant]
  11. FISH OIL [Concomitant]
  12. VITAMIN D [Concomitant]
  13. VITAMIN E [Concomitant]
  14. LORATADINE [Concomitant]
  15. VITAMIN B COMPLEX [Concomitant]
  16. FLOVENT [Concomitant]
     Dosage: 100MCG, BID

REACTIONS (8)
  - Deep vein thrombosis [None]
  - Post thrombotic syndrome [None]
  - Alopecia [None]
  - Infection [None]
  - Pain [None]
  - Local swelling [None]
  - Impaired work ability [None]
  - Venous insufficiency [None]
